FAERS Safety Report 7422980-2 (Version None)
Quarter: 2011Q2

REPORT INFORMATION
  Report Type: 
  Country: None (occurrence: None)
  Receive Date: 20110414
  Receipt Date: 20110414
  Transmission Date: 20111010
  Serious: Yes (Life-Threatening)
  Sender: FDA-Public Use
  Company Number: None

PATIENT
  Age: 43 Year
  Sex: Female
  Weight: 71.2147 kg

DRUGS (1)
  1. FERAHEME [Suspect]
     Indication: IRON DEFICIENCY ANAEMIA
     Dosage: 510  DAY 1 AND 8 IV BOLUS
     Route: 040
     Dates: start: 20110413, end: 20110413

REACTIONS (2)
  - PALATAL OEDEMA [None]
  - DYSPNOEA [None]
